FAERS Safety Report 14920640 (Version 1)
Quarter: 2018Q2

REPORT INFORMATION
  Report Type: Spontaneous
  Country: KR (occurrence: KR)
  Receive Date: 20180521
  Receipt Date: 20180521
  Transmission Date: 20180711
  Serious: Yes (Death, Hospitalization)
  Sender: FDA-Public Use
  Company Number: KR-BAYER-2018-092137

PATIENT
  Age: 29 Year
  Sex: Female

DRUGS (1)
  1. ASPIRIN. [Suspect]
     Active Substance: ASPIRIN
     Dosage: UNK

REACTIONS (7)
  - Dyspnoea [None]
  - Vomiting [None]
  - Contusion [None]
  - Head titubation [None]
  - Pupillary disorder [None]
  - Death [Fatal]
  - Loss of consciousness [None]
